FAERS Safety Report 14950422 (Version 5)
Quarter: 2020Q3

REPORT INFORMATION
  Report Type: Spontaneous
  Country: US (occurrence: US)
  Receive Date: 20180530
  Receipt Date: 20200703
  Transmission Date: 20201102
  Serious: Yes (Death, Hospitalization, Other)
  Sender: FDA-Public Use
  Company Number: US-BRISTOL-MYERS SQUIBB COMPANY-BMS-2018-049888

PATIENT
  Sex: Female

DRUGS (1)
  1. OPDIVO [Suspect]
     Active Substance: NIVOLUMAB
     Indication: ANAL CANCER
     Dosage: 240 MG, Q2WK
     Route: 065
     Dates: start: 20180427, end: 20180518

REACTIONS (3)
  - Hypercalcaemia of malignancy [Not Recovered/Not Resolved]
  - Malignant neoplasm progression [Fatal]
  - Intentional product use issue [Unknown]
